FAERS Safety Report 22045795 (Version 2)
Quarter: 2023Q1

REPORT INFORMATION
  Report Type: Spontaneous
  Country: ES (occurrence: ES)
  Receive Date: 20230228
  Receipt Date: 20230303
  Transmission Date: 20230417
  Serious: Yes (Hospitalization)
  Sender: FDA-Public Use
  Company Number: ES-AEMPS-1335536

PATIENT
  Age: 78 Year
  Sex: Male

DRUGS (5)
  1. VENETOCLAX [Suspect]
     Active Substance: VENETOCLAX
     Indication: Lymphocytic lymphoma
     Dosage: 10 MG FILM-COATED TABLETS, 14 TABLETS
     Route: 048
     Dates: start: 20230118
  2. OBINUTUZUMAB [Suspect]
     Active Substance: OBINUTUZUMAB
     Indication: Lymphocytic lymphoma
     Dosage: 1000 MG CONCENTRATE FOR SOLUTION FOR INFUSION, 1 VIAL OF 40 ML
     Route: 042
     Dates: start: 20221228, end: 20230104
  3. BISOPROLOL [Suspect]
     Active Substance: BISOPROLOL
     Indication: Cardiac failure
     Route: 048
     Dates: start: 20221223
  4. METHYLPREDNISOLONE HEMISUCCINATE [Suspect]
     Active Substance: METHYLPREDNISOLONE HEMISUCCINATE
     Indication: Hypercalcaemia
     Route: 048
     Dates: start: 20221221, end: 20221227
  5. DILTIAZEM HYDROCHLORIDE [Suspect]
     Active Substance: DILTIAZEM HYDROCHLORIDE
     Indication: Cardiac failure
     Dosage: RETARD 120 MG TABLETS MODIFIED RELEASE, 40 TABLETS
     Route: 048
     Dates: start: 20221201, end: 20230117

REACTIONS (2)
  - Cardiac failure [Recovered/Resolved]
  - Cardiac failure [Recovered/Resolved]

NARRATIVE: CASE EVENT DATE: 20230118
